FAERS Safety Report 24464139 (Version 1)
Quarter: 2024Q4

REPORT INFORMATION
  Report Type: Report from Study
  Country: US (occurrence: US)
  Receive Date: 20241018
  Receipt Date: 20241018
  Transmission Date: 20250115
  Serious: No
  Sender: ROCHE
  Company Number: US-ROCHE-3478171

PATIENT
  Age: 26 Year
  Sex: Male
  Weight: 136.1 kg

DRUGS (5)
  1. XOLAIR [Suspect]
     Active Substance: OMALIZUMAB
     Indication: Asthma
     Route: 065
  2. ALBUTEROL [Concomitant]
     Active Substance: ALBUTEROL
  3. TRELEGY ELLIPTA [Concomitant]
     Active Substance: FLUTICASONE FUROATE\UMECLIDINIUM BROMIDE\VILANTEROL TRIFENATATE
  4. XOPENEX [Concomitant]
     Active Substance: LEVALBUTEROL HYDROCHLORIDE
  5. DELTASONE [Concomitant]
     Active Substance: PREDNISONE

REACTIONS (12)
  - Migraine [Unknown]
  - Hepatic lesion [Unknown]
  - Leukocytosis [Unknown]
  - Arthralgia [Unknown]
  - Hyperhidrosis [Unknown]
  - Erectile dysfunction [Unknown]
  - Anxiety [Unknown]
  - Nausea [Unknown]
  - Vomiting [Unknown]
  - Pericarditis [Recovered/Resolved]
  - Pneumonia [Unknown]
  - Vocal cord dysfunction [Unknown]

NARRATIVE: CASE EVENT DATE: 20120202
